FAERS Safety Report 15295404 (Version 1)
Quarter: 2018Q3

REPORT INFORMATION
  Report Type: Spontaneous
  Country: DE (occurrence: DE)
  Receive Date: 20180820
  Receipt Date: 20180820
  Transmission Date: 20181010
  Serious: Yes (Other)
  Sender: FDA-Public Use
  Company Number: PHHY2018DE072508

PATIENT
  Sex: Male
  Weight: 89 kg

DRUGS (2)
  1. SIMVASTATIN. [Suspect]
     Active Substance: SIMVASTATIN
     Indication: CORONARY ARTERY DISEASE
     Dosage: 40 MG, UNK
     Route: 048
     Dates: start: 20180329, end: 20180529
  2. ATORVASTATIN [Suspect]
     Active Substance: ATORVASTATIN
     Indication: CORONARY ARTERY DISEASE
     Dosage: 40 MG, UNK
     Route: 048
     Dates: start: 20170921, end: 20171218

REACTIONS (2)
  - Tendonitis [Recovered/Resolved]
  - Myalgia [Recovered/Resolved]
